FAERS Safety Report 4431342-1 (Version None)
Quarter: 2004Q3

REPORT INFORMATION
  Report Type: 
  Country: None (occurrence: None)
  Receive Date: 20040824
  Receipt Date: 20040810
  Transmission Date: 20050211
  Serious: Yes (Death, Life-Threatening)
  Sender: FDA-Public Use
  Company Number: JACFRA1999000232

PATIENT
  Age: 65 Year
  Sex: Male

DRUGS (8)
  1. HALDOL [Suspect]
     Route: 049
  2. MEPRONIZINE [Suspect]
     Route: 049
  3. MEPRONIZINE [Suspect]
     Route: 049
  4. NOCTRAN [Suspect]
     Route: 049
  5. NOCTRAN [Suspect]
     Route: 049
  6. NOCTRAN [Suspect]
     Dosage: 1DF PER DAY
     Route: 049
  7. THERALENE [Suspect]
     Route: 049
  8. CHOLSTAT [Suspect]
     Indication: DRUG USE FOR UNKNOWN INDICATION
     Route: 049
     Dates: start: 19990415, end: 19990503

REACTIONS (4)
  - CONFUSIONAL STATE [None]
  - GENERAL PHYSICAL CONDITION ABNORMAL [None]
  - HEPATITIS FULMINANT [None]
  - RENAL FAILURE ACUTE [None]
